FAERS Safety Report 15736718 (Version 1)
Quarter: 2018Q4

REPORT INFORMATION
  Report Type: Spontaneous
  Country: US (occurrence: US)
  Receive Date: 20181204
  Receipt Date: 20181204
  Transmission Date: 20190205
  Serious: Yes (Death)
  Sender: FDA-Public Use
  Company Number: None

PATIENT
  Age: 65 Year
  Sex: Male

DRUGS (8)
  1. VALACYCLOVIR [Concomitant]
     Active Substance: VALACYCLOVIR HYDROCHLORIDE
  2. ODANSETRON [Concomitant]
     Active Substance: ONDANSETRON
  3. BUPROPION. [Concomitant]
     Active Substance: BUPROPION
  4. TYLENOL [Concomitant]
     Active Substance: ACETAMINOPHEN
  5. TORSEMIDE. [Concomitant]
     Active Substance: TORSEMIDE
  6. VITAMIN D3 [Concomitant]
     Active Substance: CHOLECALCIFEROL
  7. CENTRUM SILVER [Concomitant]
     Active Substance: MINERALS\VITAMINS
  8. PROCRIT [Suspect]
     Active Substance: ERYTHROPOIETIN
     Indication: ANAEMIA OF CHRONIC DISEASE
     Dosage: ?          OTHER FREQUENCY:AS DIRECTED;?
     Route: 058
     Dates: start: 20181013

REACTIONS (1)
  - Death [None]

NARRATIVE: CASE EVENT DATE: 20181120
